FAERS Safety Report 19209725 (Version 1)
Quarter: 2021Q2

REPORT INFORMATION
  Report Type: Spontaneous
  Country: NL (occurrence: NL)
  Receive Date: 20210504
  Receipt Date: 20210504
  Transmission Date: 20210717
  Serious: Yes (Hospitalization)
  Sender: FDA-Public Use
  Company Number: NL-TEVA-2021-NL-1906381

PATIENT
  Age: 54 Year
  Sex: Female
  Weight: 63 kg

DRUGS (2)
  1. DICLOFENAC?NATRIUM TABLET MGA 75MG / BRAND NAME NOT SPECIFIED [Suspect]
     Active Substance: DICLOFENAC SODIUM
     Indication: OSTEOARTHRITIS
     Dosage: 1X, 75 MG
     Route: 065
     Dates: start: 2020, end: 20200710
  2. CITALOPRAM TABLET OMHULD 40MG / CIPRAMIL TABLET OMHULD 40MG [Concomitant]
     Dosage: 40 MG, THERAPY START AND END DATE: ASKU

REACTIONS (1)
  - Anaphylactic shock [Recovered/Resolved]

NARRATIVE: CASE EVENT DATE: 20200710
